FAERS Safety Report 9204546 (Version 1)
Quarter: 2013Q1

REPORT INFORMATION
  Report Type: Spontaneous
  Country: US (occurrence: None)
  Receive Date: 20120709
  Receipt Date: 20120709
  Transmission Date: 20140127
  Serious: No
  Sender: FDA-Public Use
  Company Number: 2012HGS-003457

PATIENT
  Age: 47 Year
  Sex: Female
  Weight: 68.04 kg

DRUGS (7)
  1. BENLYSTA [Suspect]
     Indication: SYSTEMIC LUPUS ERYTHEMATOSUS
     Dosage: 1 IN 28 D
     Route: 041
     Dates: start: 20120216
  2. CYMBALTA (DULOXETINE HYDROCHLORIDE) (DULOXETINE HYDROCHLORIDE) [Concomitant]
  3. LASIX (FUROSEMIDE) (FUROSEMIDE) [Concomitant]
  4. LOPRESSOR (METOPROLOL TARTRATE) (METOPROLOL TARTRATE) [Concomitant]
  5. CARAFATE (SUCRALFATE) (SUCRALFATE) [Concomitant]
  6. NEXIUM (ESOMEPRAZOLE MAGNESIUM) (ESOMEPRAZOLE MAGENSIUM) [Concomitant]
  7. PERCOCET (TYLOX/00446701/) PARACETAMOL, OXYCODONE TEREPHTHALATE) [Concomitant]

REACTIONS (6)
  - Decreased appetite [None]
  - Asthenia [None]
  - Weight decreased [None]
  - Nausea [None]
  - Depression [None]
  - Headache [None]
